FAERS Safety Report 7898092-0 (Version None)
Quarter: 2011Q4

REPORT INFORMATION
  Report Type: 
  Country: None (occurrence: None)
  Receive Date: 20111103
  Receipt Date: 20111019
  Transmission Date: 20120403
  Serious: Yes (Hospitalization, Other)
  Sender: FDA-Public Use
  Company Number: DSJ-2011-02970

PATIENT
  Age: 8 Decade
  Sex: Male

DRUGS (6)
  1. DILTIAZEM [Concomitant]
  2. BENICAR [Suspect]
     Indication: HYPERTENSION
     Dosage: SEE IMAGE
     Route: 048
     Dates: start: 20110101
  3. BENICAR [Suspect]
     Indication: HYPERTENSION
     Dosage: SEE IMAGE
     Route: 048
     Dates: start: 20080701, end: 20100801
  4. BENICAR [Suspect]
     Indication: HYPERTENSION
     Dosage: SEE IMAGE
     Route: 048
     Dates: start: 20100801, end: 20110101
  5. ACETYLSALICYLIC ACID (ACETYLSALICYLC ACID) (ACETYLSALICYLIC ACID) [Concomitant]
  6. ORPHENADRINE/METAMIZOLE/CAFFEINE [Concomitant]

REACTIONS (6)
  - HEADACHE [None]
  - CARDIO-RESPIRATORY ARREST [None]
  - CATHETER PLACEMENT [None]
  - HYPOTENSION [None]
  - DRUG INEFFECTIVE [None]
  - HYPERCHOLESTEROLAEMIA [None]
